FAERS Safety Report 11999438 (Version 1)
Quarter: 2016Q1

REPORT INFORMATION
  Report Type: Report from Study
  Country: US (occurrence: US)
  Receive Date: 20160204
  Receipt Date: 20160204
  Transmission Date: 20160526
  Serious: No
  Sender: FDA-Public Use
  Company Number: US-AMGEN-USASL2016011249

PATIENT
  Age: 68 Year
  Sex: Male

DRUGS (1)
  1. ENBREL [Suspect]
     Active Substance: ETANERCEPT
     Indication: RHEUMATOID ARTHRITIS
     Dosage: UNK UNK, UNK
     Route: 065
     Dates: start: 20151230

REACTIONS (5)
  - Sinusitis [Unknown]
  - Feeling abnormal [Unknown]
  - Pharyngitis [Unknown]
  - Viral infection [Unknown]
  - Lethargy [Unknown]

NARRATIVE: CASE EVENT DATE: 20160126
